APPROVED DRUG PRODUCT: GENTAMICIN SULFATE
Active Ingredient: GENTAMICIN SULFATE
Strength: EQ 0.3% BASE
Dosage Form/Route: SOLUTION/DROPS;OPHTHALMIC
Application: A062635 | Product #001
Applicant: EPIC PHARMA LLC
Approved: Jan 8, 1987 | RLD: No | RS: No | Type: DISCN